FAERS Safety Report 8769132 (Version 1)
Quarter: 2012Q4

REPORT INFORMATION
  Report Type: 
  Country: US (occurrence: US)
  Receive Date: 20120905
  Receipt Date: 20120905
  Transmission Date: 20130627
  Serious: Yes (Hospitalization)
  Sender: FDA-Public Use
  Company Number: US-ELI_LILLY_AND_COMPANY-US201208009052

PATIENT
  Age: 44 Year
  Sex: Male

DRUGS (11)
  1. ADCIRCA [Suspect]
     Indication: PULMONARY ARTERIAL HYPERTENSION
     Dosage: 40 mg, unknown
     Route: 048
  2. ALDACTONE [Concomitant]
     Dosage: 100 mg, unknown
  3. K-DUR [Concomitant]
     Dosage: 20 mEq, unknown
  4. AMBIEN CR [Concomitant]
     Dosage: 12.5 mg, unknown
  5. ZAROXOLYN [Concomitant]
     Dosage: 10 mg, unknown
  6. COUMADIN [Concomitant]
     Dosage: 1 mg, unknown
  7. LEXAPRO [Concomitant]
     Dosage: 10 mg, unknown
  8. POTASSIUM [Concomitant]
     Dosage: 75 mg, unknown
  9. LASIX [Concomitant]
     Dosage: 20 mg, unknown
  10. TRACLEER [Concomitant]
     Dosage: 62.5 mg, unknown
  11. REMODULIN [Concomitant]
     Dosage: 1 mg/ml

REACTIONS (2)
  - Body temperature increased [Unknown]
  - Device related infection [Unknown]
